FAERS Safety Report 11084025 (Version 1)
Quarter: 2015Q2

REPORT INFORMATION
  Report Type: Spontaneous
  Country: DE (occurrence: DE)
  Receive Date: 20150501
  Receipt Date: 20150501
  Transmission Date: 20150821
  Serious: Yes (Life-Threatening, Hospitalization, Other)
  Sender: FDA-Public Use
  Company Number: DE-ABBVIE-15P-062-1373496-00

PATIENT
  Age: 2 Month
  Sex: Male

DRUGS (4)
  1. SYNAGIS [Suspect]
     Active Substance: PALIVIZUMAB
     Route: 030
     Dates: start: 201312, end: 201312
  2. ROTATEQ [Suspect]
     Active Substance: HUMAN ROTAVIRUS A TYPE G1P7(5) STRAIN WI79 LIVE ANTIGEN\HUMAN ROTAVIRUS A TYPE G2P7(5) STRAIN SC2 LIVE ANTIGEN\HUMAN ROTAVIRUS A TYPE G3P7(5) STRAIN WI78 LIVE ANTIGEN\HUMAN ROTAVIRUS A TYPE G4P7(5) STRAIN BRB LIVE ANTIGEN\HUMAN ROTAVIRUS A TYPE G6P1A(8) STRAIN WI79 LIVE ANTIGEN
     Indication: IMMUNISATION
     Route: 065
     Dates: start: 20131003, end: 20131003
  3. SYNAGIS [Suspect]
     Active Substance: PALIVIZUMAB
     Indication: IMMUNISATION
     Route: 030
     Dates: start: 20131003, end: 20131003
  4. SYNAGIS [Suspect]
     Active Substance: PALIVIZUMAB
     Route: 030
     Dates: start: 201311, end: 201311

REACTIONS (8)
  - Upper respiratory tract infection [Unknown]
  - Apnoea [Recovered/Resolved]
  - Rotavirus infection [Recovered/Resolved]
  - Respiration abnormal [Unknown]
  - Gastroenteritis [Unknown]
  - Pyrexia [Recovered/Resolved]
  - Diarrhoea [Unknown]
  - Rhinitis [Unknown]

NARRATIVE: CASE EVENT DATE: 201312
